FAERS Safety Report 15244452 (Version 1)
Quarter: 2018Q3

REPORT INFORMATION
  Report Type: Spontaneous
  Country: IN (occurrence: IN)
  Receive Date: 20180806
  Receipt Date: 20180806
  Transmission Date: 20181010
  Serious: Yes (Other)
  Sender: FDA-Public Use
  Company Number: IN-IMPAX LABORATORIES, INC-2018-IPXL-02556

PATIENT

DRUGS (5)
  1. DIVALPROEX SODIUM ER [Suspect]
     Active Substance: DIVALPROEX SODIUM
     Indication: MEDULLOBLASTOMA
     Dosage: UNK, IN 12?WEEKLY CYCLES
     Route: 048
  2. TEMOZOLOMIDE. [Suspect]
     Active Substance: TEMOZOLOMIDE
     Indication: MEDULLOBLASTOMA
     Dosage: LOW DOSE, UNK, IN 12?WEEKLY CYCLES
     Route: 048
  3. 13?CIS?RETINOIC ACID [Suspect]
     Active Substance: ISOTRETINOIN
     Indication: MEDULLOBLASTOMA
     Dosage: UNK, IN 12?WEEKLY CYCLES
     Route: 048
  4. ETOPOSIDE. [Suspect]
     Active Substance: ETOPOSIDE
     Indication: MEDULLOBLASTOMA
     Dosage: UNK, IN 12?WEEKLY CYCLES
     Route: 048
  5. DIVALPROEX SODIUM ER [Suspect]
     Active Substance: DIVALPROEX SODIUM
     Indication: PRODUCT USE IN UNAPPROVED INDICATION

REACTIONS (2)
  - Acute myeloid leukaemia [Unknown]
  - Product use in unapproved indication [Unknown]
